FAERS Safety Report 8309440-1 (Version None)
Quarter: 2012Q2

REPORT INFORMATION
  Report Type: 
  Country: None (occurrence: None)
  Receive Date: 20120424
  Receipt Date: 20120424
  Transmission Date: 20120825
  Serious: Yes (Death)
  Sender: FDA-Public Use
  Company Number: None

PATIENT
  Age: 11 Year
  Sex: Female
  Weight: 70 kg

DRUGS (1)
  1. CARBOPLATIN [Suspect]
     Indication: ASTROCYTOMA
     Dosage: 294 MG ONCE INTRAVENOUS (IV)
     Route: 042
     Dates: start: 20120420

REACTIONS (11)
  - TACHYPNOEA [None]
  - ABDOMINAL PAIN [None]
  - DIARRHOEA HAEMORRHAGIC [None]
  - LABORATORY TEST ABNORMAL [None]
  - HYPOKALAEMIA [None]
  - RESPIRATORY ALKALOSIS [None]
  - LACTIC ACIDOSIS [None]
  - RENAL FAILURE ACUTE [None]
  - METABOLIC ACIDOSIS [None]
  - TRANSAMINASES INCREASED [None]
  - HAEMOLYSIS [None]
